FAERS Safety Report 6112655-4 (Version None)
Quarter: 2009Q1

REPORT INFORMATION
  Report Type: 
  Country: None (occurrence: None)
  Receive Date: 20090312
  Receipt Date: 20090226
  Transmission Date: 20090719
  Serious: Yes (Hospitalization, Disabling, Other)
  Sender: FDA-Public Use
  Company Number: IT-ASTRAZENECA-2009AP01576

PATIENT
  Age: 19470 Day
  Sex: Male
  Weight: 50 kg

DRUGS (6)
  1. IRESSA [Suspect]
     Indication: NON-SMALL CELL LUNG CANCER
     Route: 048
     Dates: start: 20040205, end: 20040412
  2. DURAGESIC-100 [Concomitant]
     Indication: CANCER PAIN
     Route: 058
     Dates: start: 20040401
  3. DELTACORTENE [Concomitant]
     Indication: LUNG NEOPLASM MALIGNANT
     Route: 048
     Dates: start: 20040401
  4. ANTRA [Concomitant]
     Indication: PROPHYLAXIS
     Route: 048
     Dates: start: 20040401
  5. LEXOTAN [Concomitant]
     Indication: ANXIETY
     Route: 048
     Dates: start: 20040401
  6. KETOROLAC TROMETHAMINE [Concomitant]
     Indication: CANCER PAIN
     Route: 030
     Dates: start: 20040401

REACTIONS (1)
  - PULMONARY FIBROSIS [None]
